FAERS Safety Report 10049038 (Version 1)
Quarter: 2014Q1

REPORT INFORMATION
  Report Type: Spontaneous
  Country: ES (occurrence: ES)
  Receive Date: 20140331
  Receipt Date: 20140331
  Transmission Date: 20141002
  Serious: Yes (Death, Hospitalization)
  Sender: FDA-Public Use
  Company Number: ES-ASTRAZENECA-2014SE21830

PATIENT
  Age: 60 Year
  Sex: Female

DRUGS (3)
  1. SEROQUEL PROLONG [Suspect]
     Indication: COMPLETED SUICIDE
     Route: 048
     Dates: start: 20130504, end: 20130504
  2. VENLAFAXIN [Interacting]
     Indication: COMPLETED SUICIDE
     Route: 048
     Dates: start: 20130504, end: 20130504
  3. LYRICA [Interacting]
     Indication: COMPLETED SUICIDE
     Route: 048
     Dates: start: 20130504, end: 20130504

REACTIONS (5)
  - Drug interaction [Fatal]
  - Status epilepticus [Fatal]
  - Cardiogenic shock [Fatal]
  - Circulatory collapse [Fatal]
  - Multi-organ failure [Fatal]
